FAERS Safety Report 10036517 (Version 3)
Quarter: 2014Q2

REPORT INFORMATION
  Report Type: Spontaneous
  Country: IE (occurrence: IE)
  Receive Date: 20140326
  Receipt Date: 20140414
  Transmission Date: 20141212
  Serious: Yes (Other)
  Sender: FDA-Public Use
  Company Number: PHFR2014IE001345

PATIENT
  Age: 28 Year
  Sex: Male

DRUGS (2)
  1. CLOZARIL [Suspect]
     Dosage: UNK
     Route: 048
     Dates: start: 20140115, end: 20140206
  2. CLOZARIL [Suspect]
     Dosage: 100 MG, BID
     Route: 048

REACTIONS (8)
  - Neutrophil count increased [Recovering/Resolving]
  - Urinary retention [Recovered/Resolved with Sequelae]
  - Blood pressure fluctuation [Recovered/Resolved]
  - Headache [Recovered/Resolved]
  - Tachycardia [Recovered/Resolved]
  - Constipation [Recovered/Resolved]
  - Pyrexia [Recovered/Resolved]
  - Vomiting [Recovered/Resolved]
